FAERS Safety Report 8562330-1 (Version None)
Quarter: 2012Q3

REPORT INFORMATION
  Report Type: 
  Country: None (occurrence: None)
  Receive Date: 20120802
  Receipt Date: 20120713
  Transmission Date: 20120928
  Serious: No
  Sender: FDA-Public Use
  Company Number: US-AMGEN-USASP2012043636

PATIENT
  Age: 63 Year
  Sex: Female

DRUGS (1)
  1. ENBREL [Suspect]
     Indication: RHEUMATOID ARTHRITIS
     Dosage: 50 MG, QWK
     Dates: start: 20100831, end: 20120623

REACTIONS (9)
  - BACK PAIN [None]
  - FLANK PAIN [None]
  - HYPERTENSION [None]
  - HEART RATE INCREASED [None]
  - HERPES ZOSTER [None]
  - MUSCLE SPASMS [None]
  - ARTHRALGIA [None]
  - ABDOMINAL PAIN [None]
  - ABDOMINAL RIGIDITY [None]
